FAERS Safety Report 24036561 (Version 1)
Quarter: 2024Q2

REPORT INFORMATION
  Report Type: Spontaneous
  Country: US (occurrence: None)
  Receive Date: 20240630
  Receipt Date: 20240630
  Transmission Date: 20240715
  Serious: Yes (Life-Threatening, Disabling)
  Sender: FDA-Public Use
  Company Number: None

PATIENT
  Age: 38 Year
  Sex: Female

DRUGS (1)
  1. DEXTROAMPHETAMINE [Suspect]
     Active Substance: DEXTROAMPHETAMINE

REACTIONS (5)
  - Suicidal ideation [None]
  - Irritability [None]
  - Anxiety [None]
  - Lethargy [None]
  - Feeling jittery [None]

NARRATIVE: CASE EVENT DATE: 20240430
